FAERS Safety Report 23540595 (Version 1)
Quarter: 2024Q1

REPORT INFORMATION
  Report Type: Other
  Country: US (occurrence: None)
  Receive Date: 20240219
  Receipt Date: 20240219
  Transmission Date: 20240409
  Serious: Yes (Other)
  Sender: FDA-Public Use
  Company Number: US-ROCHE-3506314

PATIENT
  Age: 55 Year
  Sex: Female

DRUGS (1)
  1. OCREVUS [Suspect]
     Active Substance: OCRELIZUMAB
     Indication: Relapsing multiple sclerosis
     Route: 065

REACTIONS (5)
  - Pancreas infection [Unknown]
  - Urinary tract infection [Unknown]
  - Cholecystitis infective [Unknown]
  - Hepatic infection [Unknown]
  - Gastric ulcer [Not Recovered/Not Resolved]
